FAERS Safety Report 8598577-8 (Version None)
Quarter: 2012Q3

REPORT INFORMATION
  Report Type: 
  Country: None (occurrence: None)
  Receive Date: 20120816
  Receipt Date: 20120810
  Transmission Date: 20120928
  Serious: Yes (Death, Hospitalization)
  Sender: FDA-Public Use
  Company Number: FR-PFIZER INC-2012139476

PATIENT
  Age: 82 Year
  Sex: Female

DRUGS (13)
  1. ATACAND [Concomitant]
     Dosage: UNK
  2. GENTAMICIN [Suspect]
     Indication: STAPHYLOCOCCAL SEPSIS
     Dosage: 420 MG, 1X/DAY
     Route: 042
     Dates: start: 20120414, end: 20120416
  3. CALCIPARINE [Suspect]
     Indication: THROMBOSIS PROPHYLAXIS
     Dosage: 5000 IU, 2X/DAY
     Route: 058
     Dates: start: 20120414, end: 20120425
  4. DEPAKENE [Concomitant]
     Dosage: UNK
  5. ZYVOX [Suspect]
     Indication: STAPHYLOCOCCAL SEPSIS
     Dosage: 600 MG, 2X/DAY
     Route: 042
     Dates: start: 20120416, end: 20120422
  6. ORBENIN CAP [Suspect]
     Indication: STAPHYLOCOCCAL SEPSIS
     Dosage: 2 G, 4X/DAY
     Route: 042
     Dates: start: 20120414, end: 20120416
  7. PREVISCAN [Concomitant]
     Dosage: UNK
  8. CORDARONE [Concomitant]
     Dosage: UNK
  9. LEVOTHYROXINE SODIUM [Concomitant]
     Dosage: UNK
  10. PANTOPRAZOLE SODIUM [Concomitant]
     Dosage: UNK
  11. LERCANIDIPINE [Concomitant]
     Dosage: UNK
  12. PREDNISONE TAB [Concomitant]
     Dosage: UNK
  13. KEPPRA [Concomitant]
     Dosage: UNK

REACTIONS (3)
  - THROMBOCYTOPENIA [None]
  - NEUTROPENIA [None]
  - ANAEMIA [None]
